FAERS Safety Report 14456464 (Version 1)
Quarter: 2018Q1

REPORT INFORMATION
  Report Type: Spontaneous
  Country: IT (occurrence: IT)
  Receive Date: 20180130
  Receipt Date: 20180130
  Transmission Date: 20180509
  Serious: Yes (Hospitalization, Other)
  Sender: FDA-Public Use
  Company Number: IT-CIPLA (EU) LIMITED-2018IT02241

PATIENT

DRUGS (3)
  1. PAROXETINE. [Suspect]
     Active Substance: PAROXETINE
     Indication: DEPRESSION
     Dosage: 10 MG, QD
     Route: 065
  2. LEVETIRACETAM. [Suspect]
     Active Substance: LEVETIRACETAM
     Indication: PRODUCT USED FOR UNKNOWN INDICATION
     Dosage: 750 MG, BID
     Route: 065
  3. ENOXAPARIN [Suspect]
     Active Substance: ENOXAPARIN
     Indication: PRODUCT USED FOR UNKNOWN INDICATION
     Dosage: 4000 IU, QD
     Route: 058

REACTIONS (7)
  - Pancytopenia [Recovered/Resolved]
  - Liver abscess [Recovered/Resolved]
  - Pneumonia [Recovered/Resolved]
  - Meningioma [Recovered/Resolved]
  - Bile duct stone [Recovered/Resolved]
  - Epilepsy [Unknown]
  - Jaundice [Recovered/Resolved]
